FAERS Safety Report 5308113-7 (Version None)
Quarter: 2007Q2

REPORT INFORMATION
  Report Type: 
  Country: None (occurrence: None)
  Receive Date: 20070423
  Receipt Date: 20070423
  Transmission Date: 20071010
  Serious: Yes (Life-Threatening, Hospitalization, Other)
  Sender: FDA-Public Use
  Company Number: None

PATIENT
  Age: 63 Year
  Sex: Male
  Weight: 100 kg

DRUGS (1)
  1. TENECTAPLASE [Suspect]
     Indication: MYOCARDIAL INFARCTION
     Dosage: GIVEN AT ANOTHER HOSPITAL
     Dates: start: 20070331, end: 20070331

REACTIONS (4)
  - ANEURYSM [None]
  - HAEMORRHAGE INTRACRANIAL [None]
  - NEUROLOGICAL SYMPTOM [None]
  - RESPIRATORY FAILURE [None]
